FAERS Safety Report 6518475-0 (Version None)
Quarter: 2009Q4

REPORT INFORMATION
  Report Type: 
  Country: None (occurrence: None)
  Receive Date: 20091226
  Receipt Date: 20091215
  Transmission Date: 20100525
  Serious: Yes (Hospitalization)
  Sender: FDA-Public Use
  Company Number: DE-JNJFOC-20071201121

PATIENT
  Age: 8 Decade
  Sex: Female
  Weight: 65 kg

DRUGS (3)
  1. DOXORUBICIN HCL [Suspect]
     Indication: BREAST CANCER
     Route: 042
  2. OMEPRAZOLE [Concomitant]
     Indication: DYSPEPSIA
     Route: 065
  3. METOCLOPRAMIDE HYDROCHLORIDE [Concomitant]
     Indication: NAUSEA
     Route: 065

REACTIONS (1)
  - HAEMOPTYSIS [None]
